FAERS Safety Report 20700501 (Version 1)
Quarter: 2022Q2

REPORT INFORMATION
  Report Type: Spontaneous
  Country: US (occurrence: US)
  Receive Date: 20220412
  Receipt Date: 20220412
  Transmission Date: 20220721
  Serious: No
  Sender: FDA-Public Use
  Company Number: US-PFIZER INC-2021862912

PATIENT
  Age: 51 Year
  Sex: Male
  Weight: 83.9 kg

DRUGS (5)
  1. INLYTA [Suspect]
     Active Substance: AXITINIB
     Indication: Renal cancer
     Dosage: 5 MG, 2X/DAY
     Route: 048
     Dates: start: 20210615
  2. LISINOPRIL [Concomitant]
     Active Substance: LISINOPRIL
     Dosage: UNK
  3. SHINGRIX [Concomitant]
     Active Substance: RECOMBINANT VARICELLA ZOSTER VIRUS (VZV) GLYCOPROTEIN E
     Dosage: UNK
  4. TOZINAMERAN [Concomitant]
     Active Substance: TOZINAMERAN
     Dosage: UNK
  5. KEYTRUDA [Concomitant]
     Active Substance: PEMBROLIZUMAB
     Dosage: UNK

REACTIONS (3)
  - Arthralgia [Unknown]
  - Dysphonia [Unknown]
  - Dry skin [Unknown]
